FAERS Safety Report 7719384-1 (Version None)
Quarter: 2011Q3

REPORT INFORMATION
  Report Type: 
  Country: None (occurrence: None)
  Receive Date: 20110830
  Receipt Date: 20110826
  Transmission Date: 20111222
  Serious: Yes (Hospitalization, Other)
  Sender: FDA-Public Use
  Company Number: US-AMGEN-USASP2011042896

PATIENT
  Age: 39 Year
  Sex: Male
  Weight: 108.84 kg

DRUGS (11)
  1. OXYCODONE HCL [Concomitant]
     Dosage: 5 MG, UNK
  2. CLARITHROMYCIN [Concomitant]
     Dosage: 500 MG, QD
     Route: 048
  3. ETHAMBUTOL HYDROCHLORIDE [Concomitant]
     Dosage: 1200 MG, UNK
  4. FLUCONAZOLE [Concomitant]
     Dosage: 100 MG, QD
  5. NEURONTIN [Concomitant]
     Dosage: 600 MG, TID
     Route: 048
  6. CYCLOBENZAPRINE [Concomitant]
     Dosage: 10 MG, Q8H
  7. NPLATE [Suspect]
     Indication: IDIOPATHIC THROMBOCYTOPENIC PURPURA
     Dosage: 3 MUG/KG, UNK
     Route: 058
     Dates: start: 20110708
  8. PREDNISONE [Concomitant]
     Dosage: 10 MG, QD
     Route: 048
     Dates: start: 20110328
  9. CORTICOSTEROIDS [Concomitant]
  10. SULFAMETHOXAZOLE AND TRIMETHOPRIM [Concomitant]
     Dosage: UNK UNK, QD
     Route: 048
  11. ATRIPLA [Concomitant]
     Dosage: UNK UNK, QD
     Route: 048

REACTIONS (11)
  - MYCOBACTERIUM AVIUM COMPLEX INFECTION [None]
  - VOMITING [None]
  - LIVER FUNCTION TEST ABNORMAL [None]
  - NAUSEA [None]
  - DIARRHOEA [None]
  - WEIGHT DECREASED [None]
  - CONTUSION [None]
  - DECREASED APPETITE [None]
  - FATIGUE [None]
  - PAIN IN EXTREMITY [None]
  - THROMBOCYTOPENIA [None]
